FAERS Safety Report 4659034-4 (Version None)
Quarter: 2005Q2

REPORT INFORMATION
  Report Type: 
  Country: None (occurrence: None)
  Receive Date: 20050509
  Receipt Date: 20050426
  Transmission Date: 20051028
  Serious: Yes (Death, Hospitalization, Disabling)
  Sender: FDA-Public Use
  Company Number: 04P-087-0256489-00

PATIENT
  Age: 51 Year
  Sex: Male

DRUGS (9)
  1. KALETRA [Suspect]
     Indication: HIV INFECTION
     Dosage: 6 CAPSULE, 1 IN 1 D, PER ORAL
     Route: 048
     Dates: start: 20021220, end: 20030120
  2. LAMIVUDINE [Concomitant]
  3. DIDANOSINE [Concomitant]
  4. NELFINAVIR [Concomitant]
  5. AZITHROMYCIN DIHYDRATE [Concomitant]
  6. BACTRIM [Concomitant]
  7. PENTAMIDINE ISETHIONATE [Concomitant]
  8. ACYCLOVIR [Concomitant]
  9. IMMUNE GLOBULIN INTRAVENOUS (HUMAN) [Concomitant]

REACTIONS (9)
  - ANAEMIA [None]
  - BRADYCARDIA [None]
  - CONDITION AGGRAVATED [None]
  - DISSEMINATED INTRAVASCULAR COAGULATION [None]
  - LEUKOPENIA [None]
  - LYMPHOMA [None]
  - RESPIRATORY DISORDER [None]
  - SHOCK [None]
  - THROMBOCYTOPENIA [None]
